FAERS Safety Report 24819319 (Version 1)
Quarter: 2025Q1

REPORT INFORMATION
  Report Type: Report from Study
  Country: PH (occurrence: PH)
  Receive Date: 20250108
  Receipt Date: 20250108
  Transmission Date: 20250408
  Serious: Yes (Death, Other)
  Sender: PFIZER
  Company Number: PH-TAKEDA-2024TUS115002

PATIENT
  Age: 82 Year
  Sex: Male

DRUGS (2)
  1. BRENTUXIMAB VEDOTIN [Suspect]
     Active Substance: BRENTUXIMAB VEDOTIN
     Indication: Peripheral T-cell lymphoma unspecified
     Dosage: 50 MG, EVERY 3 WEEKS
     Route: 042
     Dates: start: 20241107
  2. BRENTUXIMAB VEDOTIN [Suspect]
     Active Substance: BRENTUXIMAB VEDOTIN
     Indication: Angioimmunoblastic T-cell lymphoma
     Dosage: 50 MILLIGRAM, Q3WEEKS
     Route: 042
     Dates: start: 20241218

REACTIONS (5)
  - Death [Fatal]
  - Arthralgia [Not Recovered/Not Resolved]
  - Back pain [Not Recovered/Not Resolved]
  - Dizziness [Not Recovered/Not Resolved]
  - Diarrhoea [Not Recovered/Not Resolved]

NARRATIVE: CASE EVENT DATE: 20241108
